FAERS Safety Report 7194654-7 (Version None)
Quarter: 2010Q4

REPORT INFORMATION
  Report Type: 
  Country: None (occurrence: None)
  Receive Date: 20101223
  Receipt Date: 20100917
  Transmission Date: 20110411
  Serious: No
  Sender: FDA-Public Use
  Company Number: US-AMGEN-KDL439147

PATIENT

DRUGS (9)
  1. ENBREL [Suspect]
     Indication: PRODUCT USED FOR UNKNOWN INDICATION
     Dosage: 50 MG, QWK
     Route: 058
  2. DULOXETIME HYDROCHLORIDE [Concomitant]
     Dosage: 20 MG, UNK
  3. HYDROXYCHLOROQUINE SULFATE [Concomitant]
     Dosage: 200 MG, UNK
  4. ACETAMINOPHEN AND HYDROCODONE BITARTRATE [Concomitant]
     Dosage: UNK UNK, UNK
  5. LEVOTHYROXINE SODIUM [Concomitant]
     Dosage: 100 A?G, UNK
  6. LEFLUNOMIDE [Concomitant]
     Dosage: 10 MG, UNK
  7. OMEPRAZOLE [Concomitant]
     Dosage: 10 MG, UNK
  8. MELOXICAM [Concomitant]
     Dosage: 15 MG, UNK
  9. MULTI-VITAMINS [Concomitant]
     Dosage: UNK UNK, UNK

REACTIONS (7)
  - DYSSTASIA [None]
  - GAIT DISTURBANCE [None]
  - INJECTION SITE ERYTHEMA [None]
  - INJECTION SITE PRURITUS [None]
  - INJECTION SITE SWELLING [None]
  - INSOMNIA [None]
  - PRURITUS GENERALISED [None]
